FAERS Safety Report 7580315-9 (Version None)
Quarter: 2011Q2

REPORT INFORMATION
  Report Type: 
  Country: None (occurrence: None)
  Receive Date: 20110527
  Receipt Date: 20101101
  Transmission Date: 20111010
  Serious: Yes (Other)
  Sender: FDA-Public Use
  Company Number: US200902002442

PATIENT
  Age: 76 Year
  Sex: Female
  Weight: 64.9 kg

DRUGS (12)
  1. GLIPIZIDE [Concomitant]
  2. VYTORIN [Concomitant]
  3. FUROSEMIDE [Concomitant]
  4. EXENATIDE 10MCG PEN, DISPOSABLE DEVICE (EXENATIDE PEN (10MCG)) PEN,DIS [Concomitant]
  5. COLCHICINE [Concomitant]
  6. CEFUROXIME [Concomitant]
  7. AZOR (ALPRAZOLAM) [Concomitant]
  8. BYETTA [Suspect]
     Indication: TYPE 2 DIABETES MELLITUS
     Dosage: 5 UG, 2/D, SUBCUTANEOUS ; 10 UG, 2/D
     Route: 058
     Dates: start: 20080612, end: 20080701
  9. BYETTA [Suspect]
     Indication: TYPE 2 DIABETES MELLITUS
     Dosage: 5 UG, 2/D, SUBCUTANEOUS ; 10 UG, 2/D
     Route: 058
     Dates: start: 20080701, end: 20090127
  10. PLAVIX [Concomitant]
  11. ASPIRIN [Concomitant]
  12. FISH OIL (FISH OIL) [Concomitant]

REACTIONS (3)
  - WEIGHT DECREASED [None]
  - RENAL INJURY [None]
  - PANCREATITIS [None]
